FAERS Safety Report 18898168 (Version 1)
Quarter: 2021Q1

REPORT INFORMATION
  Report Type: Spontaneous
  Country: US (occurrence: US)
  Receive Date: 20210213
  Receipt Date: 20210213
  Transmission Date: 20210420
  Serious: Yes (Hospitalization, Other)
  Sender: FDA-Public Use
  Company Number: None

PATIENT
  Sex: Male

DRUGS (3)
  1. HUMIRA [Suspect]
     Active Substance: ADALIMUMAB
     Indication: CROHN^S DISEASE
     Dosage: ?          OTHER FREQUENCY:EVERY 7 DAYS;?
     Route: 058
     Dates: start: 20200725
  2. METHOTREXATE. [Suspect]
     Active Substance: METHOTREXATE
  3. METHOTREXATE; BUPROPION XL; BUSPIRONE; FOLIC ACID [Concomitant]

REACTIONS (1)
  - Overdose [None]
